FAERS Safety Report 6424265-X (Version None)
Quarter: 2009Q4

REPORT INFORMATION
  Report Type: 
  Country: None (occurrence: None)
  Receive Date: 20091102
  Receipt Date: 20091020
  Transmission Date: 20100525
  Serious: Yes (Other)
  Sender: FDA-Public Use
  Company Number: US-WATSON-2009-08977

PATIENT
  Age: 55 Year
  Sex: Female

DRUGS (1)
  1. DOBUTAMINE HCL [Suspect]
     Indication: ANGIOGRAM
     Dosage: 5-20  UG/KG, PER MIN
     Route: 042

REACTIONS (1)
  - STRESS CARDIOMYOPATHY [None]
